FAERS Safety Report 5419979-4 (Version None)
Quarter: 2007Q3

REPORT INFORMATION
  Report Type: 
  Country: None (occurrence: None)
  Receive Date: 20070718
  Receipt Date: 20060623
  Transmission Date: 20080115
  Serious: Yes (Hospitalization)
  Sender: FDA-Public Use
  Company Number: 2006079454

PATIENT
  Age: 65 Year
  Sex: Female
  Weight: 74.8435 kg

DRUGS (1)
  1. CELEBREX [Suspect]
     Indication: PAIN
     Dosage: (2 IN 1 D)
     Dates: start: 20010101

REACTIONS (3)
  - CHEST PAIN [None]
  - HYPERTENSION [None]
  - MYOCARDIAL INFARCTION [None]
